FAERS Safety Report 16361241 (Version 1)
Quarter: 2019Q3

REPORT INFORMATION
  Report Type: Spontaneous
  Country: US (occurrence: US)
  Receive Date: 20190524
  Receipt Date: 20190524
  Transmission Date: 20191004
  Serious: No
  Sender: FDA-Public Use
  Company Number: None

PATIENT
  Age: 60 Year
  Sex: Male
  Weight: 93.9 kg

DRUGS (5)
  1. GABAPENTIN. [Concomitant]
     Active Substance: GABAPENTIN
     Dates: start: 20180313, end: 20180316
  2. LIDOCAINE INFUSION [Suspect]
     Active Substance: LIDOCAINE HYDROCHLORIDE
     Dosage: ?          OTHER FREQUENCY:1.5MG/MIN;?
     Route: 041
     Dates: start: 20180313, end: 20180313
  3. ALVIMOPAN [Concomitant]
     Active Substance: ALVIMOPAN
     Dates: start: 20180313, end: 20180316
  4. CEFOXITIN [Concomitant]
     Active Substance: CEFOXITIN SODIUM
     Dates: start: 20180313, end: 20180314
  5. ORPHENADRINE [Concomitant]
     Active Substance: ORPHENADRINE
     Dates: start: 20180313, end: 20180314

REACTIONS (2)
  - Infusion related reaction [None]
  - Hallucination [None]

NARRATIVE: CASE EVENT DATE: 20180313
